FAERS Safety Report 19213132 (Version 2)
Quarter: 2021Q3

REPORT INFORMATION
  Report Type: Report from Study
  Country: CO (occurrence: CO)
  Receive Date: 20210504
  Receipt Date: 20210910
  Transmission Date: 20211014
  Serious: Yes (Life-Threatening)
  Sender: FDA-Public Use
  Company Number: CO-TAKEDA-CO202025698

PATIENT
  Age: 13 Year
  Sex: Female
  Weight: 41 kg

DRUGS (4)
  1. ICATIBANT [Suspect]
     Active Substance: ICATIBANT ACETATE
     Dosage: 30 MG/3 ML
     Route: 058
     Dates: start: 20200806, end: 20200806
  2. ICATIBANT [Suspect]
     Active Substance: ICATIBANT ACETATE
     Dosage: 30 MG/3 ML
     Route: 058
     Dates: start: 20200806, end: 20200806
  3. ICATIBANT [Suspect]
     Active Substance: ICATIBANT ACETATE
     Indication: HEREDITARY ANGIOEDEMA
     Dosage: 30 MILLIGRAM, TID
     Route: 058
     Dates: start: 20190219
  4. ICATIBANT [Suspect]
     Active Substance: ICATIBANT ACETATE
     Indication: HEREDITARY ANGIOEDEMA
     Dosage: 30 MILLIGRAM, TID
     Route: 058
     Dates: start: 20190219

REACTIONS (7)
  - Suspected COVID-19 [Unknown]
  - Weight increased [Unknown]
  - Dyspnoea [Recovered/Resolved]
  - Ageusia [Not Recovered/Not Resolved]
  - Chest pain [Recovered/Resolved]
  - Anosmia [Not Recovered/Not Resolved]
  - Body height increased [Unknown]

NARRATIVE: CASE EVENT DATE: 20210427
